FAERS Safety Report 13764160 (Version 1)
Quarter: 2017Q3

REPORT INFORMATION
  Report Type: Spontaneous
  Country: JP (occurrence: JP)
  Receive Date: 20170718
  Receipt Date: 20170718
  Transmission Date: 20171127
  Serious: Yes (Other)
  Sender: FDA-Public Use
  Company Number: JP-PFIZER INC-2017305199

PATIENT
  Age: 9 Decade
  Sex: Female

DRUGS (1)
  1. SUTENT [Suspect]
     Active Substance: SUNITINIB MALATE
     Indication: METASTATIC RENAL CELL CARCINOMA
     Dosage: 25 MG, DAILY (4 WEEKS ON AND 2 WEEKS OFF)
     Route: 048

REACTIONS (2)
  - Respiratory failure [Unknown]
  - Cardiac failure [Unknown]
